FAERS Safety Report 17524724 (Version 4)
Quarter: 2023Q1

REPORT INFORMATION
  Report Type: Spontaneous
  Country: ES (occurrence: ES)
  Receive Date: 20200311
  Receipt Date: 20230118
  Transmission Date: 20230417
  Serious: Yes (Hospitalization, Other)
  Sender: FDA-Public Use
  Company Number: None

PATIENT
  Age: 82 Year
  Sex: Male

DRUGS (7)
  1. DICLOFENAC [Interacting]
     Active Substance: DICLOFENAC
     Indication: Arthralgia
     Dosage: 50 MG, TID
     Route: 048
     Dates: start: 20191229, end: 20191229
  2. SINTROM [Interacting]
     Active Substance: ACENOCOUMAROL
     Indication: Atrial fibrillation
     Dosage: 4 MG
     Route: 048
     Dates: start: 20120727, end: 20200128
  3. COSOPT [Concomitant]
     Active Substance: DORZOLAMIDE HYDROCHLORIDE\TIMOLOL MALEATE
     Indication: Glaucoma
     Dosage: 1 GTT, BID
     Route: 050
     Dates: start: 20180221
  4. OMEPRAZOL (OMEPRAZOLE) [Concomitant]
     Indication: Product used for unknown indication
     Dosage: 20 MG, QD
     Route: 048
     Dates: start: 20171227
  5. LATANOPROST [Concomitant]
     Active Substance: LATANOPROST
     Indication: Glaucoma
     Dosage: 1 GTT, QD  (IN SOLUTION, 1 BOTTLE OF 2.5 ML)
     Route: 050
     Dates: start: 20120606
  6. CANDESARTAN CILEXETIL\HYDROCHLOROTHIAZIDE [Concomitant]
     Active Substance: CANDESARTAN CILEXETIL\HYDROCHLOROTHIAZIDE
     Indication: Hypertension
     Dosage: 1 DF, QD
     Route: 048
     Dates: start: 20160902
  7. COLIRIO [Concomitant]
     Indication: Glaucoma
     Dosage: 1 GTT, BID
     Route: 047
     Dates: start: 20180221

REACTIONS (3)
  - Melaena [Recovered/Resolved]
  - Duodenal ulcer [Recovered/Resolved]
  - Drug interaction [Unknown]

NARRATIVE: CASE EVENT DATE: 20191229
